FAERS Safety Report 21926843 (Version 1)
Quarter: 2023Q1

REPORT INFORMATION
  Report Type: Spontaneous
  Country: US (occurrence: None)
  Receive Date: 20230127
  Receipt Date: 20230127
  Transmission Date: 20230417
  Serious: Yes (unspecified)
  Sender: FDA-Public Use
  Company Number: None

PATIENT
  Sex: Female

DRUGS (1)
  1. XYWAV [Suspect]
     Active Substance: CALCIUM OXYBATE\MAGNESIUM OXYBATE\POTASSIUM OXYBATE\SODIUM OXYBATE
     Indication: Hypersomnia
     Dosage: OTHER QUANTITY : 2 2 BOTTLES;?OTHER FREQUENCY : TWICE A NIGHT;?OTHER ROUTE : LIQUID MIXED WITH WATER
     Route: 050
     Dates: start: 20230113, end: 20230122

REACTIONS (8)
  - Anxiety [None]
  - Palpitations [None]
  - Tachycardia [None]
  - Hyperhidrosis [None]
  - Paraesthesia [None]
  - Panic reaction [None]
  - Feeling of body temperature change [None]
  - Chest discomfort [None]

NARRATIVE: CASE EVENT DATE: 20230123
